FAERS Safety Report 20169477 (Version 2)
Quarter: 2022Q3

REPORT INFORMATION
  Report Type: Spontaneous
  Country: CL (occurrence: CL)
  Receive Date: 20211210
  Receipt Date: 20220712
  Transmission Date: 20221027
  Serious: Yes (Hospitalization, Other)
  Sender: FDA-Public Use
  Company Number: CL-GSKCCFAMERS-Case-01234752_AE-72390

PATIENT

DRUGS (5)
  1. FLUTICASONE PROPIONATE\SALMETEROL XINAFOATE [Suspect]
     Active Substance: FLUTICASONE PROPIONATE\SALMETEROL XINAFOATE
     Indication: Asthma
     Dosage: UNK, 250/50
  2. CALCIUM BROMOLACTOBIONATE [Suspect]
     Active Substance: CALCIUM BROMOLACTOBIONATE
     Indication: Fatigue
     Dosage: UNK, WHEN SHE WAS 30 YEARS OLD A DOCTOR PRESCRIBED
  3. LOSARTAN [Suspect]
     Active Substance: LOSARTAN
     Indication: Hypertension
     Dosage: UNK, SINCE THE AGE OF 25
  4. BISOPROLOL [Suspect]
     Active Substance: BISOPROLOL
     Indication: Hypertension
     Dosage: UNK, SINCE THE AGE OF 25
  5. FLUTICASONE FUROATE\VILANTEROL TRIFENATATE [Concomitant]
     Active Substance: FLUTICASONE FUROATE\VILANTEROL TRIFENATATE
     Indication: Product used for unknown indication
     Dosage: 2 PUFF(S), BID, 92 / 22MG
     Route: 055
     Dates: start: 20210922

REACTIONS (5)
  - Pulmonary oedema [Unknown]
  - Loss of consciousness [Unknown]
  - Anaphylactic shock [Unknown]
  - Product prescribing error [Unknown]
  - Product use in unapproved indication [Unknown]

NARRATIVE: CASE EVENT DATE: 20210401
